FAERS Safety Report 7401347-7 (Version None)
Quarter: 2011Q2

REPORT INFORMATION
  Report Type: 
  Country: None (occurrence: None)
  Receive Date: 20110407
  Receipt Date: 20080319
  Transmission Date: 20111010
  Serious: Yes (Hospitalization)
  Sender: FDA-Public Use
  Company Number: AU-AMGEN AB-QUU256177

PATIENT
  Age: 41 Year
  Sex: Male

DRUGS (5)
  1. NEULASTA [Suspect]
     Indication: CHEMOTHERAPY
     Dosage: 6 MG, UNK
     Route: 058
     Dates: start: 20070616, end: 20070616
  2. VINDESINE [Suspect]
     Dosage: 1.7 MG, UNK
     Route: 042
     Dates: start: 20070612, end: 20070612
  3. ETOPOSIDE [Suspect]
     Dosage: 210 MG, UNK
     Route: 042
     Dates: start: 20070612, end: 20070615
  4. DOXORUBICIN HCL [Suspect]
     Dosage: 10 G, UNK
     Route: 042
     Dates: start: 20070612, end: 20070612
  5. IFOSFAMIDE [Suspect]
     Dosage: 3.8 G, UNK
     Route: 042
     Dates: start: 20070612, end: 20070615

REACTIONS (2)
  - DRUG INEFFECTIVE [None]
  - FEBRILE NEUTROPENIA [None]
